FAERS Safety Report 8357516-5 (Version None)
Quarter: 2012Q2

REPORT INFORMATION
  Report Type: 
  Country: None (occurrence: None)
  Receive Date: 20120514
  Receipt Date: 20110627
  Transmission Date: 20120825
  Serious: No
  Sender: FDA-Public Use
  Company Number: US-TEVA-2011003435

PATIENT
  Sex: Male

DRUGS (1)
  1. NUVIGIL [Suspect]
     Indication: MULTIPLE SCLEROSIS
     Route: 048

REACTIONS (1)
  - DRUG INEFFECTIVE FOR UNAPPROVED INDICATION [None]
